FAERS Safety Report 20347221 (Version 1)
Quarter: 2022Q1

REPORT INFORMATION
  Report Type: Spontaneous
  Country: US (occurrence: US)
  Receive Date: 20220118
  Receipt Date: 20220118
  Transmission Date: 20220423
  Serious: Yes (Other)
  Sender: FDA-Public Use
  Company Number: US-GLAXOSMITHKLINE-US2022GSK007970

PATIENT
  Sex: Female

DRUGS (14)
  1. ZANTAC [Suspect]
     Active Substance: RANITIDINE HYDROCHLORIDE
     Indication: Dyspepsia
     Dosage: UNK UNK, QD
     Route: 065
     Dates: start: 201401, end: 202008
  2. ZANTAC [Suspect]
     Active Substance: RANITIDINE HYDROCHLORIDE
     Dosage: UNK, TWICE
     Route: 065
     Dates: start: 201401, end: 202008
  3. ZANTAC [Suspect]
     Active Substance: RANITIDINE HYDROCHLORIDE
     Indication: Dyspepsia
     Dosage: UNK UNK, QD
     Route: 065
     Dates: start: 201401, end: 202008
  4. ZANTAC [Suspect]
     Active Substance: RANITIDINE HYDROCHLORIDE
     Dosage: UNK, TWICE
     Route: 065
     Dates: start: 201401, end: 202008
  5. ZANTAC [Suspect]
     Active Substance: RANITIDINE HYDROCHLORIDE
     Indication: Dyspepsia
     Dosage: UNK UNK, QD
     Route: 065
     Dates: start: 201401, end: 202008
  6. ZANTAC [Suspect]
     Active Substance: RANITIDINE HYDROCHLORIDE
     Dosage: UNK, TWICE
     Route: 065
     Dates: start: 201401, end: 202008
  7. RANITIDINE [Suspect]
     Active Substance: RANITIDINE
     Indication: Dyspepsia
     Dosage: UNK UNK, QD
     Route: 065
     Dates: start: 201401, end: 202008
  8. RANITIDINE [Suspect]
     Active Substance: RANITIDINE
     Dosage: UNK, TWICE
     Route: 065
     Dates: start: 201401, end: 202008
  9. RANITIDINE [Suspect]
     Active Substance: RANITIDINE
     Indication: Dyspepsia
     Dosage: UNK, QD
     Route: 065
     Dates: start: 201401, end: 202008
  10. RANITIDINE [Suspect]
     Active Substance: RANITIDINE
     Dosage: UNK, TWICE
     Route: 065
     Dates: start: 201401, end: 202008
  11. RANITIDINE [Suspect]
     Active Substance: RANITIDINE
     Indication: Dyspepsia
     Dosage: UNK, QD
     Route: 065
     Dates: start: 201401, end: 202008
  12. RANITIDINE [Suspect]
     Active Substance: RANITIDINE
     Dosage: UNK, TWICE
     Route: 065
     Dates: start: 201401, end: 202008
  13. RANITIDINE [Suspect]
     Active Substance: RANITIDINE
     Indication: Dyspepsia
     Dosage: UNK, QD
     Route: 065
     Dates: start: 201401, end: 202008
  14. RANITIDINE [Suspect]
     Active Substance: RANITIDINE
     Dosage: UNK, TWICE
     Route: 065
     Dates: start: 201401, end: 202008

REACTIONS (1)
  - Breast cancer [Unknown]
